FAERS Safety Report 9784656 (Version 2)
Quarter: 2014Q1

REPORT INFORMATION
  Report Type: Report from Study
  Country: FR (occurrence: FR)
  Receive Date: 20131226
  Receipt Date: 20140205
  Transmission Date: 20141002
  Serious: Yes (Life-Threatening)
  Sender: FDA-Public Use
  Company Number: FR-BAXTER-2013BAX052637

PATIENT
  Age: 83 Year
  Sex: Female
  Weight: 80 kg

DRUGS (12)
  1. BREVIBLOC 10 MG/ML, SOLUTION POUR PERFUSION [Suspect]
     Indication: PRODUCT USED FOR UNKNOWN INDICATION
     Dosage: 25 MICROGRAM/KG/MINUTE WHICH WAS 120MG/HOUR
     Route: 041
     Dates: start: 20131219
  2. BREVIBLOC 10 MG/ML, SOLUTION POUR PERFUSION [Suspect]
     Dosage: 16 MICROGRAM/KG/HR WHICH WAS 80 MILLIGRAMS/HOUR
     Route: 041
     Dates: end: 20131219
  3. SERC [Concomitant]
     Indication: PRODUCT USED FOR UNKNOWN INDICATION
     Dosage: 1 DOSE
     Route: 065
  4. NORADRENALINE [Concomitant]
     Indication: PRODUCT USED FOR UNKNOWN INDICATION
     Dosage: 1 DOSE
     Route: 065
     Dates: start: 20131219, end: 20131221
  5. INIPOMP [Concomitant]
     Indication: PRODUCT USED FOR UNKNOWN INDICATION
     Route: 065
  6. IXPRIM [Concomitant]
     Indication: PRODUCT USED FOR UNKNOWN INDICATION
     Dosage: 1 DOSE
     Route: 065
  7. FLAGYL [Concomitant]
     Indication: ENTEROCOCCAL INFECTION
     Route: 065
  8. FLAGYL [Concomitant]
     Route: 065
  9. VANCOMYCINE [Concomitant]
     Indication: ENTEROCOCCAL INFECTION
     Route: 065
  10. VANCOMYCINE [Concomitant]
     Route: 065
  11. ROCEPHINE [Concomitant]
     Indication: ENTEROCOCCAL INFECTION
     Route: 065
  12. ROCEPHINE [Concomitant]
     Route: 065

REACTIONS (2)
  - Cardiac failure acute [Recovered/Resolved]
  - Cardiogenic shock [Recovered/Resolved]
